FAERS Safety Report 4316063-8 (Version None)
Quarter: 2004Q1

REPORT INFORMATION
  Report Type: 
  Country: None (occurrence: None)
  Receive Date: 20040310
  Receipt Date: 20040225
  Transmission Date: 20041129
  Serious: Yes (Hospitalization, Other)
  Sender: FDA-Public Use
  Company Number: 2000-BP-01249

PATIENT
  Age: 1 Day
  Sex: Male

DRUGS (7)
  1. VIRAMUNE [Suspect]
     Indication: PROPHYLAXIS AGAINST HIV INFECTION
     Dosage: 200 MG (200 MG, MATERNAL DOSE) IU
     Dates: start: 20000524, end: 20000524
  2. ZIDOVUDINE [Concomitant]
  3. DEXTROSE 5% (MATERNAL) [Concomitant]
  4. DEXTROSE 20% [Concomitant]
  5. SODIUM BICARBONATE 4.2% [Concomitant]
  6. AMPICILLIN [Concomitant]
  7. TICE BCG [Concomitant]

REACTIONS (13)
  - APGAR SCORE LOW [None]
  - COMPLICATIONS OF MATERNAL EXPOSURE TO THERAPEUTIC DRUGS [None]
  - CONGENITAL ANOMALY [None]
  - DYSPNOEA [None]
  - FOETAL DISTRESS SYNDROME [None]
  - FOETAL HEART RATE DECREASED [None]
  - HEART RATE IRREGULAR [None]
  - MATERNAL DRUGS AFFECTING FOETUS [None]
  - MECONIUM INCREASED [None]
  - MECONIUM STAIN [None]
  - NEONATAL ASPIRATION [None]
  - NEUTROPHIL COUNT DECREASED [None]
  - PREMATURE SEPARATION OF PLACENTA [None]
